FAERS Safety Report 7271041-4 (Version None)
Quarter: 2011Q1

REPORT INFORMATION
  Report Type: 
  Country: None (occurrence: None)
  Receive Date: 20110202
  Receipt Date: 20110121
  Transmission Date: 20110831
  Serious: Yes (Death, Hospitalization)
  Sender: FDA-Public Use
  Company Number: US-ASTRAZENECA-2011SE03475

PATIENT
  Sex: Male

DRUGS (3)
  1. ELAVIL [Suspect]
     Route: 065
  2. LITHIUM [Suspect]
     Route: 065
  3. ZESTRIL [Suspect]
     Indication: BLOOD PRESSURE
     Route: 048

REACTIONS (2)
  - DEATH [None]
  - TOXICITY TO VARIOUS AGENTS [None]
